FAERS Safety Report 5333883-1 (Version None)
Quarter: 2007Q2

REPORT INFORMATION
  Report Type: 
  Country: None (occurrence: None)
  Receive Date: 20070524
  Receipt Date: 20070514
  Transmission Date: 20071010
  Serious: Yes (Other)
  Sender: FDA-Public Use
  Company Number: DE-SHR-DE-SHR-03-018216

PATIENT
  Age: 39 Year
  Sex: Female
  Weight: 90 kg

DRUGS (2)
  1. BETASERON [Suspect]
     Indication: MULTIPLE SCLEROSIS
     Route: 058
     Dates: start: 20040101
  2. BETASERON [Suspect]
     Dosage: 1 ML, UNK
     Route: 058
     Dates: start: 20031013, end: 20031113

REACTIONS (1)
  - DEPERSONALISATION [None]
